FAERS Safety Report 9750150 (Version 3)
Quarter: 2015Q3

REPORT INFORMATION
  Report Type: Spontaneous
  Country: US (occurrence: US)
  Receive Date: 20131212
  Receipt Date: 20150730
  Transmission Date: 20151125
  Serious: No
  Sender: FDA-Public Use
  Company Number: US-GILEAD-US-CVT-100052

PATIENT
  Sex: Male

DRUGS (16)
  1. CARDURA /00639302/ [Concomitant]
  2. ALDACTONE [Concomitant]
     Active Substance: SPIRONOLACTONE
  3. COUMADIN [Concomitant]
     Active Substance: WARFARIN SODIUM
  4. MAG-OX [Concomitant]
     Active Substance: MAGNESIUM OXIDE
  5. FUROSEMIDE                         /00032601/ [Concomitant]
  6. NITROGLYCERIN. [Concomitant]
     Active Substance: NITROGLYCERIN
     Route: 060
  7. LOVAZA [Concomitant]
     Active Substance: OMEGA-3-ACID ETHYL ESTERS
  8. MEXILETINE [Concomitant]
     Active Substance: MEXILETINE
  9. CARVEDILOL. [Concomitant]
     Active Substance: CARVEDILOL
  10. CRESTOR [Concomitant]
     Active Substance: ROSUVASTATIN CALCIUM
  11. SAW PALMETTO [Concomitant]
     Active Substance: SAW PALMETTO
  12. RANEXA [Suspect]
     Active Substance: RANOLAZINE
     Indication: ANGINA PECTORIS
  13. PROSCAR [Concomitant]
     Active Substance: FINASTERIDE
  14. LANOXIN [Concomitant]
     Active Substance: DIGOXIN
  15. ASA [Concomitant]
     Active Substance: ASPIRIN
  16. KCL [Concomitant]
     Active Substance: POTASSIUM CHLORIDE

REACTIONS (1)
  - Chromaturia [Unknown]
